FAERS Safety Report 16778392 (Version 4)
Quarter: 2019Q3

REPORT INFORMATION
  Report Type: Spontaneous
  Country: ES (occurrence: ES)
  Receive Date: 20190906
  Receipt Date: 20190923
  Transmission Date: 20191005
  Serious: Yes (Death, Other)
  Sender: FDA-Public Use
  Company Number: ES-CELLTRION INC.-2019ES024381

PATIENT

DRUGS (4)
  1. DEXAMETHASONE. [Suspect]
     Active Substance: DEXAMETHASONE
     Indication: DIFFUSE LARGE B-CELL LYMPHOMA
     Dosage: UNK UNK, CYCLIC
     Route: 037
  2. CYTARABINE. [Suspect]
     Active Substance: CYTARABINE
     Indication: DIFFUSE LARGE B-CELL LYMPHOMA
     Dosage: UNK, UNK CYCLIC
     Route: 037
  3. RITUXIMAB (UNKNOWN) [Suspect]
     Active Substance: RITUXIMAB
     Indication: DIFFUSE LARGE B-CELL LYMPHOMA
     Dosage: UNK UNK, CYCLIC
     Route: 037
  4. CISPLATIN. [Suspect]
     Active Substance: CISPLATIN
     Indication: DIFFUSE LARGE B-CELL LYMPHOMA
     Dosage: UNK UNK, CYCLIC
     Route: 037

REACTIONS (16)
  - Hypercoagulation [Fatal]
  - Hypoaesthesia [Fatal]
  - Paresis [Fatal]
  - Areflexia [Fatal]
  - Diplopia [Fatal]
  - Bradyphrenia [Fatal]
  - Muscular weakness [Fatal]
  - Paraplegia [Fatal]
  - Froin^s syndrome [Fatal]
  - Encephalomyelitis [Fatal]
  - Quadriplegia [Fatal]
  - Dysphagia [Fatal]
  - Inflammation [Fatal]
  - Encephalopathy [Fatal]
  - Urinary retention [Fatal]
  - Product use issue [Unknown]
